FAERS Safety Report 8161538-7 (Version None)
Quarter: 2012Q1

REPORT INFORMATION
  Report Type: 
  Country: None (occurrence: None)
  Receive Date: 20120224
  Receipt Date: 20120216
  Transmission Date: 20120608
  Serious: Yes (Other)
  Sender: FDA-Public Use
  Company Number: US-US-EMD SERONO, INC.-7110524

PATIENT
  Sex: Male
  Weight: 79 kg

DRUGS (5)
  1. REBIF [Suspect]
     Indication: MULTIPLE SCLEROSIS
     Route: 058
     Dates: start: 20111001, end: 20120131
  2. BACLOFEN [Concomitant]
  3. TIZANIDINE HCL [Concomitant]
  4. ROPINIROLE [Concomitant]
  5. TERAZOSIN HCL [Concomitant]

REACTIONS (3)
  - FATIGUE [None]
  - LIVER FUNCTION TEST ABNORMAL [None]
  - SPEECH DISORDER [None]
